FAERS Safety Report 8906261 (Version 1)
Quarter: 2012Q4

REPORT INFORMATION
  Report Type: Spontaneous
  Country: US (occurrence: None)
  Receive Date: 20121107
  Receipt Date: 20121107
  Transmission Date: 20130627
  Serious: Yes (Death)
  Sender: FDA-Public Use
  Company Number: UTC-024992

PATIENT
  Age: 66 Year
  Sex: Male
  Weight: 52.27 kg

DRUGS (1)
  1. TYVASO (6 MICROGRAM, AEROSOL FOR INHALATION) (TREPROSTINIL SODIUM) [Suspect]
     Dosage: 18-72 mcgs (4 in 1 D), inhalation
     Dates: start: 20100427

REACTIONS (1)
  - Death [None]
